FAERS Safety Report 5722149-3 (Version None)
Quarter: 2008Q2

REPORT INFORMATION
  Report Type: 
  Country: None (occurrence: None)
  Receive Date: 20080429
  Receipt Date: 20070523
  Transmission Date: 20081010
  Serious: No
  Sender: FDA-Public Use
  Company Number: US-ASTRAZENECA-2007UW12707

PATIENT
  Age: 78 Year
  Sex: Female
  Weight: 49.4 kg

DRUGS (6)
  1. NEXIUM [Suspect]
     Indication: ABDOMINAL DISTENSION
     Route: 048
  2. NEXIUM [Suspect]
     Indication: HIATUS HERNIA
     Route: 048
  3. NEXIUM [Suspect]
     Indication: ABDOMINAL PAIN UPPER
     Route: 048
  4. TOPROL-XL [Concomitant]
     Route: 048
  5. DIGOXIN [Concomitant]
  6. SIMVASTATIN [Concomitant]

REACTIONS (2)
  - DRUG INEFFECTIVE [None]
  - DYSPHONIA [None]
